FAERS Safety Report 8199189-0 (Version None)
Quarter: 2012Q1

REPORT INFORMATION
  Report Type: 
  Country: None (occurrence: None)
  Receive Date: 20120309
  Receipt Date: 20120307
  Transmission Date: 20120608
  Serious: Yes (Hospitalization)
  Sender: FDA-Public Use
  Company Number: DE-ABBOTT-11P-062-0868386-00

PATIENT
  Sex: Male

DRUGS (4)
  1. HUMIRA [Suspect]
     Indication: RHEUMATOID ARTHRITIS
     Route: 058
     Dates: start: 20080305, end: 20110907
  2. INSULINE [Concomitant]
     Indication: PRODUCT USED FOR UNKNOWN INDICATION
  3. PIROXICAM [Concomitant]
     Indication: PRODUCT USED FOR UNKNOWN INDICATION
  4. ARCOXIA [Concomitant]
     Indication: PRODUCT USED FOR UNKNOWN INDICATION

REACTIONS (4)
  - BLOOD GLUCOSE INCREASED [None]
  - GASTRITIS [None]
  - WEIGHT DECREASED [None]
  - PANCREATOLITHIASIS [None]
